FAERS Safety Report 4931331-4 (Version None)
Quarter: 2006Q1

REPORT INFORMATION
  Report Type: 
  Country: None (occurrence: None)
  Receive Date: 20060228
  Receipt Date: 20060217
  Transmission Date: 20060701
  Serious: No
  Sender: FDA-Public Use
  Company Number: 06H-163-0305752-00

PATIENT
  Sex: 0

DRUGS (4)
  1. ETOPOSIDE [Suspect]
     Indication: CHEMOTHERAPY
     Dosage: 100 MG/M2
  2. DOXORUBICIN (DOXORUBICIN) [Suspect]
     Indication: CHEMOTHERAPY
  3. BLEOMYCIN [Suspect]
     Dosage: 10 MG/M2, SUBCUTANEOUS
     Route: 058
  4. VINCRISTINE [Suspect]
     Indication: CHEMOTHERAPY
     Dosage: 1.5 MG/M2, INTRAVENOUS
     Route: 042

REACTIONS (1)
  - SEPSIS [None]
